FAERS Safety Report 4390677-1 (Version None)
Quarter: 2004Q2

REPORT INFORMATION
  Report Type: 
  Country: None (occurrence: None)
  Receive Date: 20040630
  Receipt Date: 20040618
  Transmission Date: 20050107
  Serious: Yes (Hospitalization, Other)
  Sender: FDA-Public Use
  Company Number: 2004041522

PATIENT
  Sex: Male
  Weight: 99.7913 kg

DRUGS (8)
  1. NARDIL [Suspect]
     Indication: DEPRESSION
     Dosage: 75 MG (75 MG, INTERVAL:  EVERY DAY), TOPICAL
     Route: 061
     Dates: start: 19800101, end: 20040513
  2. NARDIL [Suspect]
     Indication: OBSESSIVE-COMPULSIVE DISORDER
     Dosage: 75 MG (75 MG, INTERVAL:  EVERY DAY), TOPICAL
     Route: 061
     Dates: start: 19800101, end: 20040513
  3. CLONAZEPAM [Suspect]
     Indication: ANXIETY
     Dosage: 4 MG (4 MG, 1 IN 1 D),
  4. ACETYLSALICYLIC ACID SRT [Concomitant]
  5. VITAMINS (VITAMINS) [Concomitant]
  6. ASCORBIC ACID [Concomitant]
  7. TOCOPHEROL CONCENTRATE CAP [Concomitant]
  8. MULTIVITAMINS (ASCORBIC ACID, ERGOCALCIFEROL, FOLIC ACID, NICOTINAMIDE [Concomitant]

REACTIONS (9)
  - AMNESIA [None]
  - ANXIETY [None]
  - CONSTIPATION [None]
  - DEPRESSION [None]
  - DRUG DEPENDENCE [None]
  - EJACULATION DISORDER [None]
  - ERECTILE DYSFUNCTION [None]
  - OBSESSIVE-COMPULSIVE DISORDER [None]
  - SUICIDE ATTEMPT [None]
